FAERS Safety Report 9255400 (Version 1)
Quarter: 2013Q2

REPORT INFORMATION
  Report Type: Spontaneous
  Country: US (occurrence: US)
  Receive Date: 20130425
  Receipt Date: 20130425
  Transmission Date: 20140414
  Serious: Yes (Other)
  Sender: FDA-Public Use
  Company Number: US-NICOBRDEVP-2013-07369

PATIENT
  Sex: 0

DRUGS (2)
  1. CARVEDILOL (WATSON LABORATORIES) [Suspect]
     Indication: CONGESTIVE CARDIOMYOPATHY
     Dosage: UNKNOWN
     Route: 065
  2. CARVEDILOL (WATSON LABORATORIES) [Suspect]
     Indication: OFF LABEL USE

REACTIONS (2)
  - Asthma [Unknown]
  - Off label use [Unknown]
